FAERS Safety Report 20544598 (Version 1)
Quarter: 2022Q1

REPORT INFORMATION
  Report Type: Spontaneous
  Country: None (occurrence: US)
  Receive Date: 20220303
  Receipt Date: 20220303
  Transmission Date: 20220423
  Serious: No
  Sender: FDA-Public Use
  Company Number: US-Oxford Pharmaceuticals, LLC-2126406

PATIENT
  Sex: Female

DRUGS (1)
  1. METHOCARBAMOL [Suspect]
     Active Substance: METHOCARBAMOL
     Indication: Back pain
     Route: 048

REACTIONS (3)
  - Electric shock sensation [Unknown]
  - Nervousness [Unknown]
  - Dizziness [Unknown]
